FAERS Safety Report 10152952 (Version 3)
Quarter: 2014Q2

REPORT INFORMATION
  Report Type: Spontaneous
  Country: FR (occurrence: FR)
  Receive Date: 20140505
  Receipt Date: 20140516
  Transmission Date: 20141212
  Serious: Yes (Life-Threatening, Hospitalization)
  Sender: FDA-Public Use
  Company Number: FR-JNJFOC-20140209541

PATIENT
  Age: 48 Year
  Sex: Female
  Weight: 58 kg

DRUGS (19)
  1. REOPRO [Suspect]
     Indication: ACUTE CORONARY SYNDROME
     Dosage: 9:00 AM TO 9:00 PM
     Route: 042
     Dates: start: 20140124, end: 20140124
  2. EFFIENT [Suspect]
     Indication: CORONARY ANGIOPLASTY
     Dosage: MAINTENANCE DOSE
     Route: 048
     Dates: start: 20140125, end: 20140125
  3. EFFIENT [Suspect]
     Indication: CORONARY ANGIOPLASTY
     Dosage: LOADING DOSE
     Route: 048
     Dates: start: 20140124, end: 20140124
  4. EFFIENT [Suspect]
     Indication: ELECTROCARDIOGRAM ST SEGMENT ELEVATION
     Dosage: MAINTENANCE DOSE
     Route: 048
     Dates: start: 20140125, end: 20140125
  5. EFFIENT [Suspect]
     Indication: ELECTROCARDIOGRAM ST SEGMENT ELEVATION
     Dosage: LOADING DOSE
     Route: 048
     Dates: start: 20140124, end: 20140124
  6. EFFIENT [Suspect]
     Indication: ACUTE CORONARY SYNDROME
     Dosage: MAINTENANCE DOSE
     Route: 048
     Dates: start: 20140125, end: 20140125
  7. EFFIENT [Suspect]
     Indication: ACUTE CORONARY SYNDROME
     Dosage: LOADING DOSE
     Route: 048
     Dates: start: 20140124, end: 20140124
  8. ASPEGIC [Suspect]
     Indication: ELECTROCARDIOGRAM ST SEGMENT ELEVATION
     Route: 042
     Dates: start: 20140124, end: 20140124
  9. ASPEGIC [Suspect]
     Indication: ACUTE CORONARY SYNDROME
     Route: 042
     Dates: start: 20140124, end: 20140124
  10. ANGIOX [Suspect]
     Indication: ACUTE CORONARY SYNDROME
     Dosage: DOSE: 1.75 MG/KG/HR, FROM 8 TO 12
     Route: 042
     Dates: start: 20140124
  11. ANGIOX [Suspect]
     Indication: ACUTE CORONARY SYNDROME
     Dosage: DOSE: 0.25 MG/KG/HR
     Route: 042
     Dates: end: 20140125
  12. HEPARIN [Suspect]
     Indication: ACUTE CORONARY SYNDROME
     Route: 042
     Dates: start: 20140125, end: 20140125
  13. HEPARIN [Suspect]
     Indication: ACUTE CORONARY SYNDROME
     Route: 042
     Dates: start: 20140124, end: 20140124
  14. HEPARIN [Suspect]
     Indication: ELECTROCARDIOGRAM ST SEGMENT ELEVATION
     Route: 042
     Dates: start: 20140125, end: 20140125
  15. HEPARIN [Suspect]
     Indication: ELECTROCARDIOGRAM ST SEGMENT ELEVATION
     Route: 042
     Dates: start: 20140124, end: 20140124
  16. KARDEGIC [Suspect]
     Indication: ELECTROCARDIOGRAM ST SEGMENT ELEVATION
     Dosage: 75 (UNITS UNSPECIFIED)
     Route: 048
     Dates: start: 20140125
  17. KARDEGIC [Suspect]
     Indication: STENT PLACEMENT
     Dosage: 75 (UNITS UNSPECIFIED)
     Route: 048
     Dates: start: 20140125
  18. PLAVIX [Suspect]
     Indication: PRODUCT USED FOR UNKNOWN INDICATION
     Dosage: 75 (UNITS UNSPECIFIED) IF NECESSARY
     Route: 065
     Dates: start: 20140125
  19. LOVENOX [Suspect]
     Indication: PRODUCT USED FOR UNKNOWN INDICATION
     Dosage: 0.4 (UNITS UNSPECIFIED) IF NECESSARY
     Route: 065
     Dates: start: 20140125

REACTIONS (4)
  - Pulmonary alveolar haemorrhage [Recovered/Resolved]
  - Cardio-respiratory arrest [Recovered/Resolved]
  - Acute respiratory distress syndrome [Recovering/Resolving]
  - Staphylococcal infection [Recovering/Resolving]
